FAERS Safety Report 26044897 (Version 1)
Quarter: 2025Q4

REPORT INFORMATION
  Report Type: Spontaneous
  Country: JP (occurrence: JP)
  Receive Date: 20251114
  Receipt Date: 20251114
  Transmission Date: 20260118
  Serious: Yes (Other)
  Sender: REGENERON
  Company Number: JP-BAYER-2025A150112

PATIENT
  Age: 80 Year
  Sex: Male

DRUGS (2)
  1. EYLEA HD [Suspect]
     Active Substance: AFLIBERCEPT
     Indication: Diabetic retinal oedema
     Dosage: UNK, SOLUTION FOR INJECTION, 114.3 MG/ML
  2. EYLEA HD [Suspect]
     Active Substance: AFLIBERCEPT
     Dosage: 0.07 ML, Q1MON, LEFT EYE, TOTAL OF 1 DOSE PRIOR TO THE EVENT, SOLUTION FOR INJECTION, 114.3 MG/ML
     Route: 031
     Dates: start: 20250922

REACTIONS (1)
  - Vitreous opacities [Unknown]

NARRATIVE: CASE EVENT DATE: 20251006
